FAERS Safety Report 9554205 (Version 2)
Quarter: 2013Q4

REPORT INFORMATION
  Report Type: Spontaneous
  Country: JP (occurrence: JP)
  Receive Date: 20130925
  Receipt Date: 20131005
  Transmission Date: 20140711
  Serious: Yes (Death)
  Sender: FDA-Public Use
  Company Number: JP-BRACCO-007455

PATIENT
  Age: 74 Year
  Sex: Male
  Weight: 64 kg

DRUGS (8)
  1. PROHANCE [Suspect]
     Indication: NUCLEAR MAGNETIC RESONANCE IMAGING BRAIN
     Route: 040
     Dates: start: 20130918, end: 20130918
  2. ARTIST [Concomitant]
     Route: 048
  3. CARDENALIN [Concomitant]
     Route: 048
  4. SUMIFERON [Concomitant]
  5. FEBUXOSTAT [Concomitant]
     Route: 048
  6. NORMAL SALINE [Concomitant]
     Route: 042
     Dates: start: 20130918, end: 20130918
  7. AMLODIN [Concomitant]
     Route: 048
  8. XARELTO [Concomitant]
     Route: 048

REACTIONS (1)
  - Anaphylactic shock [Fatal]
